FAERS Safety Report 16841993 (Version 1)
Quarter: 2019Q3

REPORT INFORMATION
  Report Type: Report from Study
  Country: US (occurrence: US)
  Receive Date: 20190923
  Receipt Date: 20190923
  Transmission Date: 20191005
  Serious: Yes (Hospitalization)
  Sender: FDA-Public Use
  Company Number: US-MTPC-MTDA2019-0072010

PATIENT

DRUGS (3)
  1. EDARAVONE INJ [Suspect]
     Active Substance: EDARAVONE
     Dosage: UNK
     Route: 065
     Dates: start: 20190916
  2. EDARAVONE INJ [Suspect]
     Active Substance: EDARAVONE
     Dosage: UNK
     Route: 065
     Dates: start: 20190914
  3. EDARAVONE INJ [Suspect]
     Active Substance: EDARAVONE
     Indication: PRODUCT USED FOR UNKNOWN INDICATION
     Dosage: UNK
     Route: 065
     Dates: start: 201904

REACTIONS (2)
  - Vomiting [Recovered/Resolved]
  - Abdominal pain [Recovered/Resolved]

NARRATIVE: CASE EVENT DATE: 20190914
